FAERS Safety Report 14597549 (Version 5)
Quarter: 2022Q2

REPORT INFORMATION
  Report Type: Report from Study
  Country: US (occurrence: US)
  Receive Date: 20180305
  Receipt Date: 20220412
  Transmission Date: 20220721
  Serious: Yes (Hospitalization, Other)
  Sender: FDA-Public Use
  Company Number: US-ABBVIE-18K-163-2272320-00

PATIENT
  Age: 69 Year
  Sex: Female

DRUGS (4)
  1. HUMIRA [Suspect]
     Active Substance: ADALIMUMAB
     Indication: Ankylosing spondylitis
     Dosage: CITRATE FREE
     Route: 058
     Dates: start: 20170316
  2. HUMIRA [Suspect]
     Active Substance: ADALIMUMAB
     Indication: Psoriasis
  3. HUMIRA [Suspect]
     Active Substance: ADALIMUMAB
     Indication: Psoriatic arthropathy
  4. MODERNA COVID-19 VACCINE [Concomitant]
     Active Substance: ELASOMERAN
     Indication: COVID-19 immunisation
     Route: 030

REACTIONS (17)
  - Retinal detachment [Recovering/Resolving]
  - Cataract [Unknown]
  - Urinary tract infection [Unknown]
  - Dehydration [Unknown]
  - Illness [Unknown]
  - Weight decreased [Unknown]
  - Fatigue [Unknown]
  - Constipation [Unknown]
  - Blood potassium increased [Unknown]
  - Blood creatine increased [Unknown]
  - Heart rate decreased [Unknown]
  - Cyst [Unknown]
  - Cyst [Unknown]
  - Weight increased [Unknown]
  - Arthritis [Unknown]
  - Pain [Unknown]
  - Pyelonephritis [Unknown]

NARRATIVE: CASE EVENT DATE: 20180901
